FAERS Safety Report 15301639 (Version 1)
Quarter: 2018Q3

REPORT INFORMATION
  Report Type: Spontaneous
  Country: BR (occurrence: BR)
  Receive Date: 20180821
  Receipt Date: 20180821
  Transmission Date: 20181010
  Serious: Yes (Hospitalization)
  Sender: FDA-Public Use
  Company Number: BR-ABBVIE-18S-020-2456580-00

PATIENT
  Sex: Female

DRUGS (6)
  1. GABAPENTIN. [Concomitant]
     Active Substance: GABAPENTIN
     Dosage: 1 TABLET DAILY (300 MG,1 IN 1 D)
     Route: 048
     Dates: start: 2018
  2. ESCITALOPRAM OXALATE. [Concomitant]
     Active Substance: ESCITALOPRAM OXALATE
     Indication: DEPRESSION
  3. ANDROGEL [Suspect]
     Active Substance: TESTOSTERONE
     Indication: HOT FLUSH
     Dosage: 1 SACHET DAILY (25 MG,1 IN 1 D)
     Route: 061
     Dates: start: 2016, end: 201802
  4. GABAPENTIN. [Concomitant]
     Active Substance: GABAPENTIN
     Indication: BONE PAIN
     Dosage: 1 TABLET DAILY (300 MG,1 IN 1 D)
     Route: 048
     Dates: start: 2016, end: 2017
  5. ANDROGEL [Suspect]
     Active Substance: TESTOSTERONE
     Indication: LOSS OF LIBIDO
  6. ESCITALOPRAM OXALATE. [Concomitant]
     Active Substance: ESCITALOPRAM OXALATE
     Indication: ANXIETY
     Dosage: 1 TABLET DAILY (10 MG,1 IN 1 D)
     Route: 048
     Dates: start: 2017

REACTIONS (4)
  - Off label use [Unknown]
  - Product availability issue [Unknown]
  - Neoplasm recurrence [Unknown]
  - Withdrawal syndrome [Unknown]
